FAERS Safety Report 12843869 (Version 5)
Quarter: 2020Q3

REPORT INFORMATION
  Report Type: Report from Study
  Country: PL (occurrence: PL)
  Receive Date: 20161013
  Receipt Date: 20170623
  Transmission Date: 20201104
  Serious: Yes (Hospitalization)
  Sender: FDA-Public Use
  Company Number: PL-JNJFOC-20161005995

PATIENT
  Age: 71 Year
  Sex: Male
  Weight: 94 kg

DRUGS (56)
  1. RITUXIMAB. [Suspect]
     Active Substance: RITUXIMAB
     Indication: MANTLE CELL LYMPHOMA
     Dosage: MEDICATION KIT NUMBERS: 34687, 18719?01, 18719?02, 18720?01.
     Route: 042
     Dates: start: 20131219, end: 20160310
  2. KETOPROFEN. [Concomitant]
     Active Substance: KETOPROFEN
     Indication: NEUROLOGICAL SYMPTOM
     Dosage: ONCE (ONE TIME INTERVENTION)
     Route: 048
     Dates: start: 20131230, end: 20131230
  3. KETOPROFEN. [Concomitant]
     Active Substance: KETOPROFEN
     Indication: PYREXIA
     Dosage: ONCE (ONE TIME INTERVENTION)
     Route: 048
     Dates: start: 20131230, end: 20131230
  4. ENCORTON [Concomitant]
     Active Substance: PREDNISONE
     Indication: ARTHRITIS
     Route: 048
     Dates: start: 20140102, end: 20140106
  5. ENCORTON [Concomitant]
     Active Substance: PREDNISONE
     Indication: RASH
     Route: 048
     Dates: start: 20140327, end: 20140331
  6. ENCORTON [Concomitant]
     Active Substance: PREDNISONE
     Indication: RASH
     Route: 048
     Dates: start: 20140108, end: 20140109
  7. ENCORTON [Concomitant]
     Active Substance: PREDNISONE
     Indication: RASH
     Route: 048
     Dates: start: 20140107, end: 20140107
  8. ZINNAT [Concomitant]
     Active Substance: CEFUROXIME
     Indication: UPPER RESPIRATORY TRACT INFECTION
     Route: 048
     Dates: start: 20150219, end: 20150225
  9. FENISTIL [Concomitant]
     Active Substance: DIMETHINDENE
     Indication: DERMATITIS ALLERGIC
     Route: 061
     Dates: start: 20150604, end: 20150607
  10. LIDOCAINE. [Concomitant]
     Active Substance: LIDOCAINE
     Indication: ANAESTHETIC PREMEDICATION
     Dosage: ONCE (ONE TIME INTERVENTION)
     Route: 058
     Dates: start: 20131128, end: 20131128
  11. PARACETAMOL [Concomitant]
     Active Substance: ACETAMINOPHEN
     Indication: ARTHRITIS
     Dosage: ONCE (ONE TIME INTERVENTION)
     Route: 048
     Dates: start: 20140116, end: 20140116
  12. PARACETAMOL [Concomitant]
     Active Substance: ACETAMINOPHEN
     Indication: SCIATICA
     Route: 048
     Dates: start: 20131219, end: 20160310
  13. KETOPROFEN. [Concomitant]
     Active Substance: KETOPROFEN
     Indication: NEUROLOGICAL SYMPTOM
     Route: 048
     Dates: start: 20140305, end: 20140307
  14. KETOPROFEN. [Concomitant]
     Active Substance: KETOPROFEN
     Indication: PYREXIA
     Route: 048
     Dates: start: 20140305, end: 20140307
  15. PARACETAMOL [Concomitant]
     Active Substance: ACETAMINOPHEN
     Indication: PYREXIA
     Route: 048
     Dates: start: 20131230, end: 20140102
  16. ENCORTON [Concomitant]
     Active Substance: PREDNISONE
     Indication: ARTHRITIS
     Route: 048
     Dates: start: 20140401, end: 20140403
  17. ENCORTON [Concomitant]
     Active Substance: PREDNISONE
     Indication: ARTHRITIS
     Dosage: EVERY THIRD DAY
     Route: 048
     Dates: start: 20140411, end: 20140414
  18. ENCORTON [Concomitant]
     Active Substance: PREDNISONE
     Indication: ARTHRITIS
     Route: 048
     Dates: start: 20140108, end: 20140109
  19. LIDOCAINE. [Concomitant]
     Active Substance: LIDOCAINE
     Indication: ANAESTHETIC PREMEDICATION
     Dosage: ONCE (ONE TIME INTERVENTION)
     Route: 058
     Dates: start: 20141219, end: 20141219
  20. ATOSSA [Concomitant]
     Indication: PREMEDICATION
     Route: 048
     Dates: start: 20131219, end: 20140509
  21. PARACETAMOL [Concomitant]
     Active Substance: ACETAMINOPHEN
     Indication: ARTHRITIS
     Route: 048
     Dates: start: 20140320, end: 20140406
  22. PARACETAMOL [Concomitant]
     Active Substance: ACETAMINOPHEN
     Indication: SCIATICA
     Route: 048
     Dates: start: 20140320, end: 20140406
  23. ENCORTON [Concomitant]
     Active Substance: PREDNISONE
     Indication: RASH
     Route: 048
     Dates: start: 20140111, end: 20140111
  24. BENDAMUSTINE HYDROCHLORIDE. [Suspect]
     Active Substance: BENDAMUSTINE HYDROCHLORIDE
     Indication: MANTLE CELL LYMPHOMA
     Dosage: FOR 2 DAYS EVERY 28 DAYS, MEDICATION KIT NUMBERS: 11381?01, 11381?02
     Route: 042
     Dates: start: 20131219, end: 20140509
  25. PARACETAMOL [Concomitant]
     Active Substance: ACETAMINOPHEN
     Indication: SCIATICA
     Dosage: ONCE (ONE TIME INTERVENTION)
     Route: 048
     Dates: start: 20140116, end: 20140116
  26. PARACETAMOL [Concomitant]
     Active Substance: ACETAMINOPHEN
     Indication: PREMEDICATION
     Dosage: ONCE (ONE TIME INTERVENTION)
     Route: 048
     Dates: start: 20140116, end: 20140116
  27. ENCORTON [Concomitant]
     Active Substance: PREDNISONE
     Indication: ARTHRITIS
     Route: 048
     Dates: start: 20140110, end: 20140110
  28. ENCORTON [Concomitant]
     Active Substance: PREDNISONE
     Indication: RASH
     Route: 048
     Dates: start: 20140401, end: 20140403
  29. ASPIRIN. [Concomitant]
     Active Substance: ASPIRIN
     Indication: PYREXIA
     Route: 048
     Dates: start: 20131230, end: 20140102
  30. ENCORTON [Concomitant]
     Active Substance: PREDNISONE
     Indication: RASH
     Route: 048
     Dates: start: 20140110, end: 20140110
  31. CLEMASTIN [Concomitant]
     Active Substance: CLEMASTINE
     Indication: RASH
     Route: 048
     Dates: start: 20140102, end: 20140108
  32. ZINNAT [Concomitant]
     Active Substance: CEFUROXIME
     Indication: UPPER RESPIRATORY TRACT INFECTION
     Route: 048
     Dates: start: 20141121, end: 20141125
  33. DICORTINEF [Concomitant]
     Indication: CONJUNCTIVITIS
     Route: 047
     Dates: start: 20140623, end: 20140626
  34. ENCORTON [Concomitant]
     Active Substance: PREDNISONE
     Indication: ARTHRITIS
     Route: 048
     Dates: start: 20140327, end: 20140331
  35. ENCORTON [Concomitant]
     Active Substance: PREDNISONE
     Indication: ARTHRITIS
     Route: 048
     Dates: start: 20140107, end: 20140107
  36. ENCORTON [Concomitant]
     Active Substance: PREDNISONE
     Indication: RASH
     Dosage: EVERY THIRD DAY
     Route: 048
     Dates: start: 20140411, end: 20140414
  37. CLEMASTIN [Concomitant]
     Active Substance: CLEMASTINE
     Indication: RASH
     Route: 048
     Dates: start: 20140110, end: 20140112
  38. AMOXI?CLAVULANICO [Concomitant]
     Active Substance: AMOXICILLIN\CLAVULANIC ACID
     Indication: RASH
     Route: 048
     Dates: start: 20140102, end: 20140108
  39. ZARZIO [Concomitant]
     Active Substance: FILGRASTIM
     Indication: NEUTROPENIA
     Dosage: 48000000 UNITS
     Route: 058
     Dates: start: 20140623, end: 20140625
  40. RAMIPRIL. [Concomitant]
     Active Substance: RAMIPRIL
     Indication: HYPERTENSION
     Route: 048
     Dates: start: 20141119
  41. IBRUTINIB [Suspect]
     Active Substance: IBRUTINIB
     Route: 048
  42. IBRUTINIB [Suspect]
     Active Substance: IBRUTINIB
     Indication: MANTLE CELL LYMPHOMA
     Dosage: MEDICATION KIT NUMBERS: 70781, 78219
     Route: 048
     Dates: start: 20131219
  43. PARACETAMOL [Concomitant]
     Active Substance: ACETAMINOPHEN
     Indication: PREMEDICATION
     Route: 048
     Dates: start: 20140320, end: 20140406
  44. PARACETAMOL [Concomitant]
     Active Substance: ACETAMINOPHEN
     Indication: PREMEDICATION
     Route: 048
     Dates: start: 20131219, end: 20160310
  45. ENCORTON [Concomitant]
     Active Substance: PREDNISONE
     Indication: ARTHRITIS
     Route: 048
     Dates: start: 20140408, end: 20140410
  46. ENCORTON [Concomitant]
     Active Substance: PREDNISONE
     Indication: ARTHRITIS
     Route: 048
     Dates: start: 20140111, end: 20140111
  47. ENCORTON [Concomitant]
     Active Substance: PREDNISONE
     Indication: RASH
     Route: 048
     Dates: start: 20140408, end: 20140410
  48. ZYRTEC [Concomitant]
     Active Substance: CETIRIZINE HYDROCHLORIDE
     Indication: DERMATITIS ALLERGIC
     Route: 048
     Dates: start: 20150604, end: 20150607
  49. KALDYUM [Concomitant]
     Active Substance: POTASSIUM CHLORIDE
     Indication: HYPOKALAEMIA
     Route: 048
     Dates: start: 20160928
  50. PROSCAR [Concomitant]
     Active Substance: FINASTERIDE
     Indication: BENIGN PROSTATIC HYPERPLASIA
     Route: 048
     Dates: start: 2011
  51. LORATADINE. [Concomitant]
     Active Substance: LORATADINE
     Indication: HYPERSENSITIVITY
     Route: 048
     Dates: start: 2011
  52. HYDROCORTISONE. [Concomitant]
     Active Substance: HYDROCORTISONE
     Indication: PREMEDICATION
     Dates: start: 20131219, end: 20160310
  53. CLEMASTIN [Concomitant]
     Active Substance: CLEMASTINE
     Indication: PREMEDICATION
     Route: 042
     Dates: start: 20131219, end: 20160310
  54. PARACETAMOL [Concomitant]
     Active Substance: ACETAMINOPHEN
     Indication: ARTHRITIS
     Route: 048
     Dates: start: 20131219, end: 20160310
  55. ENCORTON [Concomitant]
     Active Substance: PREDNISONE
     Indication: RASH
     Route: 048
     Dates: start: 20140102, end: 20140106
  56. ZINNAT [Concomitant]
     Active Substance: CEFUROXIME
     Indication: UPPER RESPIRATORY TRACT INFECTION
     Route: 048
     Dates: start: 20140623, end: 20140627

REACTIONS (1)
  - Pneumonitis [Recovered/Resolved]

NARRATIVE: CASE EVENT DATE: 20160921
